FAERS Safety Report 8978083 (Version 2)
Quarter: 2013Q2

REPORT INFORMATION
  Report Type: Spontaneous
  Country: GB (occurrence: GB)
  Receive Date: 20121221
  Receipt Date: 20130530
  Transmission Date: 20140414
  Serious: Yes (Other)
  Sender: FDA-Public Use
  Company Number: GB-MYLANLABS-2012S1025536

PATIENT
  Sex: Male

DRUGS (1)
  1. SIMVASTATIN [Suspect]
     Indication: BLOOD CHOLESTEROL INCREASED
     Route: 048
     Dates: start: 20071019

REACTIONS (10)
  - Atrial tachycardia [Unknown]
  - Drug interaction [Unknown]
  - Muscle spasms [Unknown]
  - Condition aggravated [Unknown]
  - Fatigue [Unknown]
  - Malaise [Unknown]
  - Skin discolouration [Unknown]
  - Chest pain [Unknown]
  - Hyperhidrosis [Unknown]
  - Muscle tightness [Unknown]
